FAERS Safety Report 8045150-6 (Version None)
Quarter: 2012Q1

REPORT INFORMATION
  Report Type: 
  Country: None (occurrence: None)
  Receive Date: 20120113
  Receipt Date: 20110419
  Transmission Date: 20120608
  Serious: Yes (Other)
  Sender: FDA-Public Use
  Company Number: US-ASTRAZENECA-2011SE19215

PATIENT
  Age: 49 Year
  Sex: Male

DRUGS (7)
  1. OXYCODONE HCL [Concomitant]
     Route: 048
  2. VIMOVO [Concomitant]
     Route: 048
  3. SEROQUEL XR [Suspect]
     Indication: SEDATION
     Route: 048
  4. SEROQUEL XR [Suspect]
     Indication: DEPRESSION
     Route: 048
  5. METHADONE HCL [Concomitant]
     Route: 048
  6. KEPPRA [Concomitant]
     Route: 048
  7. CIPROFLOXACIN [Concomitant]
     Route: 048

REACTIONS (3)
  - WRONG TECHNIQUE IN DRUG USAGE PROCESS [None]
  - CONVULSION [None]
  - CEREBROVASCULAR ACCIDENT [None]
